FAERS Safety Report 9925257 (Version 2)
Quarter: 2014Q1

REPORT INFORMATION
  Report Type: Spontaneous
  Country: US (occurrence: US)
  Receive Date: 20140226
  Receipt Date: 20140226
  Transmission Date: 20141002
  Serious: Yes (Hospitalization)
  Sender: FDA-Public Use
  Company Number: US-BRACCO-010219

PATIENT
  Age: 78 Year
  Sex: Female

DRUGS (1)
  1. ISOVUE 300 [Suspect]
     Indication: COMPUTERISED TOMOGRAM
     Route: 042
     Dates: start: 20131018, end: 20131018

REACTIONS (2)
  - Chest pain [Unknown]
  - Vomiting [Unknown]
